FAERS Safety Report 16589495 (Version 1)
Quarter: 2019Q3

REPORT INFORMATION
  Report Type: Spontaneous
  Country: FR (occurrence: FR)
  Receive Date: 20190718
  Receipt Date: 20190718
  Transmission Date: 20191004
  Serious: Yes (Other)
  Sender: FDA-Public Use
  Company Number: FR-ACCORD-138757

PATIENT
  Age: 75 Year
  Sex: Female

DRUGS (7)
  1. PACLITAXEL KABI [Suspect]
     Active Substance: PACLITAXEL
     Indication: ENDOMETRIAL CANCER
     Dosage: STRENGTH 6 MG / ML
     Route: 042
     Dates: start: 20190605, end: 20190605
  2. ONDANSETRON [Suspect]
     Active Substance: ONDANSETRON
     Indication: PROPHYLAXIS OF NAUSEA AND VOMITING
     Route: 048
     Dates: start: 20190605, end: 20190605
  3. EMEND [Suspect]
     Active Substance: APREPITANT
     Indication: PROPHYLAXIS OF NAUSEA AND VOMITING
     Dosage: STRENGTH 125 MG
     Route: 048
     Dates: start: 20190605, end: 20190605
  4. POLARAMINE [Suspect]
     Active Substance: DEXCHLORPHENIRAMINE MALEATE
     Indication: ALLERGY PROPHYLAXIS
     Dosage: STRENGTH 5 MG/1 ML
     Route: 042
     Dates: start: 20190605, end: 20190605
  5. EMEND [Suspect]
     Active Substance: APREPITANT
     Indication: PROPHYLAXIS OF NAUSEA AND VOMITING
     Dosage: STRENGTH 80 MG
     Route: 048
     Dates: start: 20190606, end: 20190607
  6. AZANTAC [Suspect]
     Active Substance: RANITIDINE HYDROCHLORIDE
     Indication: ALLERGY PROPHYLAXIS
     Dosage: STRENGTH 50 MG/2 ML SOLUTION INJECTABLE IN AMPOULE
     Route: 042
     Dates: start: 20190605, end: 20190605
  7. DEXAMETHASONE MYLAN [Suspect]
     Active Substance: DEXAMETHASONE
     Indication: ALLERGY PROPHYLAXIS
     Dosage: STRENGTH 20 MG/5 ML SOLUTION INJECTABLE IN AMPOULE
     Route: 042
     Dates: start: 20190605, end: 20190605

REACTIONS (2)
  - Hypersensitivity [Recovered/Resolved]
  - Back pain [Recovered/Resolved]

NARRATIVE: CASE EVENT DATE: 20190605
